FAERS Safety Report 5892424-0 (Version None)
Quarter: 2008Q3

REPORT INFORMATION
  Report Type: 
  Country: None (occurrence: None)
  Receive Date: 20080923
  Receipt Date: 20080915
  Transmission Date: 20090109
  Serious: Yes (Other)
  Sender: FDA-Public Use
  Company Number: US-JNJFOC-20080903696

PATIENT
  Age: 43 Year
  Sex: Male

DRUGS (3)
  1. FLEXERIL [Suspect]
  2. FLEXERIL [Suspect]
     Indication: DRUG USE FOR UNKNOWN INDICATION
  3. NEURONTIN [Suspect]
     Indication: NEUROPATHY PERIPHERAL
     Route: 048

REACTIONS (4)
  - DEPRESSION [None]
  - HYPERSOMNIA [None]
  - INTENTIONAL OVERDOSE [None]
  - INTENTIONAL SELF-INJURY [None]
